FAERS Safety Report 19178378 (Version 1)
Quarter: 2021Q2

REPORT INFORMATION
  Report Type: Report from Study
  Country: GB (occurrence: GB)
  Receive Date: 20210426
  Receipt Date: 20210426
  Transmission Date: 20210717
  Serious: Yes (Hospitalization)
  Sender: FDA-Public Use
  Company Number: GB-BIOGEN-2021BI00971545

PATIENT
  Age: 45 Year
  Sex: Female

DRUGS (2)
  1. TECFIDERA [Suspect]
     Active Substance: DIMETHYL FUMARATE
     Dosage: MAINTENANCE DOSE
     Route: 048
     Dates: start: 20210121
  2. TECFIDERA [Suspect]
     Active Substance: DIMETHYL FUMARATE
     Indication: RELAPSING-REMITTING MULTIPLE SCLEROSIS
     Dosage: MAINTENANCE DOSE
     Route: 048
     Dates: start: 20210114

REACTIONS (4)
  - Abdominal discomfort [Recovered/Resolved]
  - Cholelithiasis [Recovered/Resolved]
  - Rhinorrhoea [Unknown]
  - Drug intolerance [Recovered/Resolved]

NARRATIVE: CASE EVENT DATE: 202103
